FAERS Safety Report 12883544 (Version 3)
Quarter: 2016Q4

REPORT INFORMATION
  Report Type: Spontaneous
  Country: US (occurrence: US)
  Receive Date: 20161025
  Receipt Date: 20161209
  Transmission Date: 20170207
  Serious: Yes (Hospitalization)
  Sender: FDA-Public Use
  Company Number: US-RELYPSA-RLY2016003144

PATIENT
  Sex: Male

DRUGS (12)
  1. VELTASSA [Suspect]
     Active Substance: PATIROMER
     Indication: HYPERKALAEMIA
     Dosage: 8.4 G, QD
     Route: 048
     Dates: start: 20160423, end: 2016
  2. AMLODIPINE BESYLATE. [Concomitant]
     Active Substance: AMLODIPINE BESYLATE
  3. ZOCOR [Concomitant]
     Active Substance: SIMVASTATIN
  4. LASIX [Concomitant]
     Active Substance: FUROSEMIDE
  5. STARLIX [Concomitant]
     Active Substance: NATEGLINIDE
  6. HUMALOG [Concomitant]
     Active Substance: INSULIN LISPRO
  7. LANTUS [Concomitant]
     Active Substance: INSULIN GLARGINE
  8. NIACIN. [Concomitant]
     Active Substance: NIACIN
  9. QUESTRAN [Concomitant]
     Active Substance: CHOLESTYRAMINE
  10. ALLOPURINOL. [Concomitant]
     Active Substance: ALLOPURINOL
  11. OMEPRAZOLE. [Concomitant]
     Active Substance: OMEPRAZOLE
  12. COREG [Concomitant]
     Active Substance: CARVEDILOL

REACTIONS (2)
  - Inadequate diet [Unknown]
  - Eye operation [Unknown]

NARRATIVE: CASE EVENT DATE: 2016
